FAERS Safety Report 15625461 (Version 1)
Quarter: 2018Q4

REPORT INFORMATION
  Report Type: Report from Study
  Country: DE (occurrence: DE)
  Receive Date: 20181116
  Receipt Date: 20181116
  Transmission Date: 20190205
  Serious: Yes (Hospitalization, Other)
  Sender: FDA-Public Use
  Company Number: DE-ROCHE-2208457

PATIENT
  Age: 65 Year
  Sex: Female
  Weight: 57 kg

DRUGS (18)
  1. ZOFRAN [Concomitant]
     Active Substance: ONDANSETRON HYDROCHLORIDE
     Indication: NAUSEA
     Route: 065
     Dates: start: 20180827
  2. PANTOPRAZOL [Concomitant]
     Active Substance: PANTOPRAZOLE SODIUM
     Indication: PROPHYLAXIS
     Route: 065
     Dates: start: 20180320
  3. NOVALGIN (METAMIZOLE SODIUM) [Concomitant]
     Active Substance: METAMIZOLE SODIUM
     Indication: PROPHYLAXIS
     Route: 065
     Dates: start: 20180320
  4. ERYTHROCYTE TRANSFUSIONS [Concomitant]
     Indication: ANAEMIA
     Route: 065
     Dates: start: 20181004, end: 20181004
  5. RANITIDIN [Concomitant]
     Active Substance: RANITIDINE HYDROCHLORIDE
     Indication: PROPHYLAXIS
     Route: 065
     Dates: start: 20181017, end: 20181017
  6. TAVEGIL [Concomitant]
     Active Substance: CLEMASTINE FUMARATE
     Indication: PROPHYLAXIS
     Route: 065
     Dates: start: 20181017, end: 20181017
  7. DEXAMETHASON [Concomitant]
     Active Substance: DEXAMETHASONE
     Indication: PROPHYLAXIS
     Route: 042
     Dates: start: 20181017, end: 20181017
  8. PLATELETS [Concomitant]
     Active Substance: HUMAN PLATELET, ALLOGENIC
     Indication: PLATELET COUNT DECREASED
     Route: 065
     Dates: start: 20181004, end: 20181004
  9. CARBOPLATIN. [Suspect]
     Active Substance: CARBOPLATIN
     Indication: OVARIAN CANCER
     Dosage: DOSE: AREA UNDER THE CURVE (AUC) OF 6 MILLIGRAMS PER MILLILITER*MINUTE (MG/ML*MIN) ON DAY 1 OF EACH
     Route: 042
     Dates: start: 20180424
  10. GRANISETRON [Concomitant]
     Active Substance: GRANISETRON
     Indication: PROPHYLAXIS
     Route: 065
     Dates: start: 20181017, end: 20181017
  11. CLEXANE [Concomitant]
     Active Substance: ENOXAPARIN SODIUM
     Indication: PROPHYLAXIS
     Route: 065
     Dates: start: 20181029
  12. TILIDIN [Concomitant]
     Active Substance: NALOXONE HYDROCHLORIDE\TILIDINE HYDROCHLORIDE
     Indication: PROPHYLAXIS
     Route: 065
     Dates: start: 20180606
  13. PACLITAXEL. [Suspect]
     Active Substance: PACLITAXEL
     Indication: OVARIAN CANCER
     Dosage: MOST RECENT DOSE OF PACLITAXEL (240.8 MG) PRIOR TO ADVERSE EVENT ONSET: 17/OCT/2018
     Route: 042
     Dates: start: 20180424
  14. MUCOFALK [Concomitant]
     Active Substance: HERBALS\PLANTAGO OVATA LEAF
     Indication: PROPHYLAXIS
     Route: 065
     Dates: start: 20180320
  15. FUROSEMID [Concomitant]
     Active Substance: FUROSEMIDE
     Indication: OEDEMA
     Route: 065
     Dates: start: 20180320
  16. ATEZOLIZUMAB. [Suspect]
     Active Substance: ATEZOLIZUMAB
     Indication: OVARIAN CANCER
     Dosage: MOST RECENT DOSE OF BLINDED ATEZOLIZUMAB PRIOR TO ADVERSE EVENT ONSET: 17/OCT/2018
     Route: 042
     Dates: start: 20180424
  17. BEVACIZUMAB. [Suspect]
     Active Substance: BEVACIZUMAB
     Indication: OVARIAN CANCER
     Dosage: MOST RECENT DOSE OF BEVACIZUMAB (885 MG) PRIOR TO ADVERSE EVENT ONSET: 17/OCT/2018
     Route: 042
     Dates: start: 20180424
  18. LAXOBERAL [Concomitant]
     Active Substance: SODIUM PICOSULFATE
     Indication: CONSTIPATION PROPHYLAXIS
     Route: 065
     Dates: start: 20180917

REACTIONS (2)
  - Diarrhoea [Not Recovered/Not Resolved]
  - Intracardiac thrombus [Not Recovered/Not Resolved]

NARRATIVE: CASE EVENT DATE: 20181024
